FAERS Safety Report 17600097 (Version 1)
Quarter: 2020Q1

REPORT INFORMATION
  Report Type: Report from Study
  Country: CO (occurrence: CO)
  Receive Date: 20200330
  Receipt Date: 20200330
  Transmission Date: 20200409
  Serious: Yes (Other)
  Sender: FDA-Public Use
  Company Number: CO-ROCHE-2435144

PATIENT
  Sex: Female
  Weight: 44 kg

DRUGS (4)
  1. AVASTIN [Suspect]
     Active Substance: BEVACIZUMAB
     Indication: PRODUCT USED FOR UNKNOWN INDICATION
     Route: 065
  2. XELODA [Suspect]
     Active Substance: CAPECITABINE
     Indication: PRODUCT USED FOR UNKNOWN INDICATION
     Dosage: TWO IN THE MORNING AND TWO IN THE AFTERNOON
     Route: 048
  3. TRASTUZUMAB. [Suspect]
     Active Substance: TRASTUZUMAB
     Indication: PRODUCT USED FOR UNKNOWN INDICATION
     Route: 065
  4. TROPISETRON [Concomitant]
     Active Substance: TROPISETRON

REACTIONS (12)
  - Weight increased [Unknown]
  - Muscle spasms [Unknown]
  - Ill-defined disorder [Unknown]
  - Arrhythmia [Unknown]
  - Skin disorder [Unknown]
  - Blood pressure increased [Unknown]
  - Pain [Unknown]
  - Migraine [Unknown]
  - Hypersensitivity [Unknown]
  - Musculoskeletal chest pain [Unknown]
  - Nasopharyngitis [Unknown]
  - Scratch [Unknown]
